FAERS Safety Report 13076435 (Version 1)
Quarter: 2016Q4

REPORT INFORMATION
  Report Type: Spontaneous
  Country: US (occurrence: US)
  Receive Date: 20161230
  Receipt Date: 20161230
  Transmission Date: 20170207
  Serious: Yes (Hospitalization)
  Sender: FDA-Public Use
  Company Number: US-JUBILANT CADISTA PHARMACEUTICALS-2016JUB00438

PATIENT
  Age: 71 Year
  Sex: Female

DRUGS (1)
  1. PREDNISONE. [Suspect]
     Active Substance: PREDNISONE
     Route: 065

REACTIONS (5)
  - Dysarthria [Recovering/Resolving]
  - Sepsis [Recovering/Resolving]
  - Atrial fibrillation [Recovering/Resolving]
  - Multi-organ disorder [Recovering/Resolving]
  - Human ehrlichiosis [Recovering/Resolving]
